FAERS Safety Report 8666242 (Version 7)
Quarter: 2013Q1

REPORT INFORMATION
  Report Type: Report from Study
  Country: KR (occurrence: KR)
  Receive Date: 20120716
  Receipt Date: 20130227
  Transmission Date: 20140127
  Serious: Yes (Hospitalization)
  Sender: FDA-Public Use
  Company Number: KR-ROCHE-1083316

PATIENT
  Age: 69 Year
  Sex: Female
  Weight: 47.9 kg

DRUGS (91)
  1. TRASTUZUMAB [Suspect]
     Indication: BREAST CANCER
     Dosage: DATE OF LAST DOSE PRIOR TO SAE: 14/JUN/2012
     Route: 042
     Dates: start: 20120329
  2. PERTUZUMAB [Suspect]
     Indication: BREAST CANCER
     Dosage: DATE OF LAST DOSE PRIOR TO SAE: 14/JUN/2012
     Route: 042
     Dates: start: 20120329
  3. CAPECITABINE [Suspect]
     Indication: BREAST CANCER
     Dosage: DATE OF LAST DOSE PRIOR TO SAE: 28/JUN/2012
     Route: 048
     Dates: start: 20120329
  4. CISPLATIN [Suspect]
     Indication: BREAST CANCER
     Dosage: DATE OF LAST DOSE PRIOR TO SAE: 14/JUN/2012
     Route: 042
     Dates: start: 20120329
  5. ALMAGATE [Concomitant]
     Indication: PAIN
     Dosage: DOSE 1 AND DOSE UNIT: OTHER
     Route: 048
     Dates: start: 20120322
  6. DRIED FERROUS SULFATE [Concomitant]
     Indication: ANAEMIA
     Dosage: DOSE: 1
     Route: 048
     Dates: start: 20120322
  7. NICOTINAMIDE/PYRIDOXINE HYDROCHLORIDE/RIBOFLAVIN/THIAMINE HYDROCHLORID [Concomitant]
     Dosage: DOSE UNIT: 1
     Route: 048
     Dates: start: 20120322
  8. CALCIUM PANTOTHENATE/CYANOCOBALAMIN/NICOTINAMIDE/PYRIDOXINE HYDROCHLOR [Concomitant]
     Dosage: DOSE UNIT: 1
     Route: 048
     Dates: start: 20120322
  9. APREPITANT [Concomitant]
     Indication: NAUSEA
     Route: 048
     Dates: start: 20120329
  10. APREPITANT [Concomitant]
     Route: 048
     Dates: start: 20120330
  11. PALONOSETRON [Concomitant]
     Indication: NAUSEA
     Route: 042
     Dates: start: 20120329
  12. DEXAMETHASONE [Concomitant]
     Route: 042
     Dates: start: 20120329
  13. DEXAMETHASONE [Concomitant]
     Route: 048
     Dates: start: 20120330
  14. MANNITOL [Concomitant]
     Route: 042
     Dates: start: 20120329
  15. ACETAMINOPHEN [Concomitant]
     Route: 048
     Dates: start: 20120329
  16. CHLORPHENIRAMINE [Concomitant]
     Route: 042
     Dates: start: 20120329
  17. IRCODON [Concomitant]
     Indication: PAIN
     Route: 048
     Dates: start: 20120329
  18. IRCODON [Concomitant]
     Route: 048
     Dates: start: 20120405
  19. POVIDONE IODINE [Concomitant]
     Indication: STOMATITIS
     Route: 050
     Dates: start: 20120412
  20. POVIDONE IODINE [Concomitant]
     Route: 050
     Dates: start: 20120417
  21. LOPERAMIDE [Concomitant]
     Indication: DIARRHOEA
     Route: 048
     Dates: start: 20120412
  22. METOCLOPRAMIDE [Concomitant]
     Indication: NAUSEA
     Route: 048
     Dates: start: 20120405
  23. PANTOPRAZOLE [Concomitant]
     Indication: PAIN
     Route: 048
     Dates: start: 20120412
  24. PANTOPRAZOLE [Concomitant]
     Route: 042
     Dates: start: 20120603
  25. PANTOPRAZOLE [Concomitant]
     Route: 042
     Dates: start: 20120629, end: 20120629
  26. CHLORHEXIDINE GLUCONATE [Concomitant]
     Indication: STOMATITIS
     Route: 050
     Dates: start: 20120416
  27. MAGNESIUM SULFATE [Concomitant]
     Indication: HYPOMAGNESAEMIA
     Route: 042
     Dates: start: 20120418
  28. MAGNESIUM SULFATE [Concomitant]
     Route: 042
     Dates: start: 20120614, end: 20120614
  29. MUPIROCIN [Concomitant]
     Indication: PALMAR-PLANTAR ERYTHRODYSAESTHESIA SYNDROME
     Route: 065
     Dates: start: 20120422
  30. MORPHINE SULFATE [Concomitant]
     Indication: PAIN
     Route: 042
     Dates: start: 20120602, end: 20120602
  31. MORPHINE SULFATE [Concomitant]
     Route: 042
     Dates: start: 20120702
  32. METRONIDAZOLE [Concomitant]
     Indication: MUCOSAL INFLAMMATION
     Route: 048
     Dates: start: 20120602
  33. METRONIDAZOLE [Concomitant]
     Indication: FEBRILE NEUTROPENIA
     Route: 042
     Dates: start: 20120603, end: 20120604
  34. METRONIDAZOLE [Concomitant]
     Route: 048
     Dates: end: 20120610
  35. METRONIDAZOLE [Concomitant]
     Route: 042
     Dates: start: 20120629
  36. METOCLOPRAMIDE [Concomitant]
     Route: 042
     Dates: start: 20120602, end: 20120602
  37. LEVOFLOXACIN [Concomitant]
     Indication: OROPHARYNGEAL PAIN
     Route: 042
     Dates: start: 20120602, end: 20120603
  38. LEVOFLOXACIN [Concomitant]
     Indication: STOMATITIS
     Route: 048
     Dates: start: 20120604, end: 20120617
  39. LEVOFLOXACIN [Concomitant]
     Indication: VAGINAL INFECTION
     Route: 042
     Dates: start: 20120628, end: 20120628
  40. LEVOFLOXACIN [Concomitant]
     Route: 048
     Dates: end: 20120629
  41. ESOMEPRAZOLE [Concomitant]
     Indication: PAIN
     Route: 048
     Dates: start: 20120604, end: 20120610
  42. MEGESTROL [Concomitant]
     Indication: DECREASED APPETITE
     Route: 048
     Dates: start: 20120510
  43. POTASSIUM CHLORIDE [Concomitant]
     Indication: HYPOCALCAEMIA
     Route: 048
     Dates: start: 20120607, end: 20120613
  44. POTASSIUM CHLORIDE [Concomitant]
     Dosage: AMPULE
     Route: 042
     Dates: start: 20120701
  45. ALBUMIN 20% [Concomitant]
     Indication: HYPOALBUMINAEMIA
     Route: 042
     Dates: start: 20120607, end: 20120607
  46. ALBUMIN 20% [Concomitant]
     Route: 042
     Dates: start: 20120614, end: 20120614
  47. ALBUMIN 20% [Concomitant]
     Route: 042
     Dates: start: 20120628
  48. CALCIUM CITRATE WITH VITAMIN D3 [Concomitant]
     Indication: HYPOCALCAEMIA
     Route: 048
     Dates: start: 20120607, end: 20120628
  49. AMBROXOL [Concomitant]
     Indication: COUGH
     Route: 048
     Dates: start: 20120603, end: 20120613
  50. AMBROXOL [Concomitant]
     Route: 048
     Dates: start: 20120628, end: 20120629
  51. SPIRONOLACTONE [Concomitant]
     Indication: OEDEMA
     Route: 048
     Dates: start: 20120614
  52. FUROSEMIDE [Concomitant]
     Indication: OEDEMA
     Route: 048
     Dates: start: 20120614, end: 20120614
  53. FUROSEMIDE [Concomitant]
     Route: 042
     Dates: start: 20120628, end: 20120628
  54. FENTANYL [Concomitant]
     Indication: PAIN
     Route: 065
     Dates: start: 20120628
  55. GYNOBETADINE [Concomitant]
     Indication: VAGINAL INFECTION
     Route: 050
     Dates: start: 20120628
  56. MORPHINE HCL [Concomitant]
     Indication: PAIN
     Route: 042
     Dates: start: 20120628
  57. FILGRASTIM [Concomitant]
     Indication: FEBRILE NEUTROPENIA
     Route: 042
     Dates: start: 20120629
  58. ONDANSETRON [Concomitant]
     Indication: NAUSEA
     Route: 042
     Dates: start: 20120629, end: 20120629
  59. ONDANSETRON [Concomitant]
     Indication: VOMITING
  60. MEROPENEM TRIHYDRATE [Concomitant]
     Indication: FEBRILE NEUTROPENIA
     Route: 042
     Dates: start: 20120629
  61. MEROPENEM TRIHYDRATE [Concomitant]
     Indication: MUCOSAL INFLAMMATION
  62. NYSTATIN [Concomitant]
     Indication: STOMATITIS
     Route: 050
     Dates: start: 20120630
  63. OXYTETRACYCLINE HCL [Concomitant]
     Indication: PALMAR-PLANTAR ERYTHRODYSAESTHESIA SYNDROME
     Route: 065
     Dates: start: 20120630
  64. POLYMYXIN B SULFATE [Concomitant]
     Indication: PALMAR-PLANTAR ERYTHRODYSAESTHESIA SYNDROME
     Route: 065
     Dates: start: 20120630
  65. FAMOTIDINE [Concomitant]
     Indication: PAIN
     Route: 042
     Dates: start: 20120630
  66. NOREPINEPHRINE [Concomitant]
     Route: 042
     Dates: start: 20120630
  67. PETHIDINE [Concomitant]
     Indication: PAIN
     Route: 042
     Dates: start: 20120630, end: 20120630
  68. SODIUM BICARBONATE [Concomitant]
     Indication: HYPONATRAEMIA
     Route: 042
     Dates: start: 20120630
  69. TETRACOSACTRIN [Concomitant]
     Route: 042
     Dates: start: 20120630, end: 20120630
  70. CALCIUM GLUCONATE [Concomitant]
     Indication: HYPOCALCAEMIA
     Route: 042
     Dates: start: 20120701
  71. POTASSIUM DIHYDROGEN PHOSPHATE [Concomitant]
     Route: 042
     Dates: start: 20120630
  72. ALGINATE SODIUM [Concomitant]
     Indication: PAIN
     Route: 048
     Dates: start: 20120602
  73. COMBIFLEX (UNK INGREDIENTS) [Concomitant]
     Route: 042
     Dates: start: 20120702
  74. KETOROLAC [Concomitant]
     Indication: PAIN
     Route: 042
     Dates: start: 20120702
  75. LIDOCAIN [Concomitant]
     Indication: STOMATITIS
     Route: 065
     Dates: start: 20120705
  76. PIROXICAM [Concomitant]
     Route: 062
     Dates: start: 20120706, end: 20120706
  77. PHYTONADIONE [Concomitant]
     Indication: MEDICAL DIET
     Route: 042
     Dates: start: 20120707, end: 20120707
  78. ACYCLOVIR [Concomitant]
     Indication: PROPHYLAXIS
     Route: 048
     Dates: start: 20120709, end: 20120714
  79. VASELINE [Concomitant]
     Indication: PALMAR-PLANTAR ERYTHRODYSAESTHESIA SYNDROME
     Route: 062
     Dates: start: 20120709, end: 20120713
  80. CEFTRIAXONE [Concomitant]
     Indication: PROPHYLAXIS
  81. ZINC OXIDE [Concomitant]
     Route: 062
     Dates: start: 20120710, end: 20120727
  82. CENTELLA ASIATICA [Concomitant]
     Route: 062
     Dates: start: 20120710, end: 20120727
  83. FAMOTIDINE [Concomitant]
     Indication: PAIN
     Route: 065
     Dates: start: 20120712, end: 20120824
  84. VANCOMYCIN [Concomitant]
     Route: 042
     Dates: start: 20120712, end: 20120714
  85. CLETAMIN [Concomitant]
     Route: 042
     Dates: start: 20120717, end: 20120726
  86. DEXAMETHASON [Concomitant]
     Indication: PREMEDICATION
     Route: 042
     Dates: start: 20120426, end: 20120614
  87. SMOFLIPID [Concomitant]
     Indication: MEDICAL DIET
     Route: 042
     Dates: start: 20120717, end: 20120725
  88. NORMAL SALINE [Concomitant]
     Indication: STOMATITIS
     Route: 065
     Dates: start: 20120718, end: 20120725
  89. TRIAMCINOLON [Concomitant]
     Indication: STOMATITIS
     Route: 065
     Dates: start: 20120718
  90. CALCIUM CARBONATE/CHOLECALCIFEROL [Concomitant]
     Indication: HYPOCALCAEMIA
     Route: 048
     Dates: start: 20120721, end: 20120810
  91. PREDNISONE [Concomitant]
     Indication: PROPHYLAXIS
     Route: 048
     Dates: start: 20121114

REACTIONS (2)
  - Febrile neutropenia [Recovered/Resolved]
  - Mucosal inflammation [Recovered/Resolved]
